FAERS Safety Report 16227346 (Version 1)
Quarter: 2019Q2

REPORT INFORMATION
  Report Type: Other
  Country: FR (occurrence: FR)
  Receive Date: 20190423
  Receipt Date: 20190423
  Transmission Date: 20190711
  Serious: Yes (Hospitalization)
  Sender: FDA-Public Use
  Company Number: FR-ASTELLAS-2019US017152

PATIENT
  Age: 83 Year
  Sex: Female
  Weight: 57 kg

DRUGS (6)
  1. LORMETAZEPAM [Suspect]
     Active Substance: LORMETAZEPAM
     Indication: PRODUCT USED FOR UNKNOWN INDICATION
     Dosage: 1 MG, ONCE DAILY (IN THE EVENING)
     Route: 048
     Dates: start: 20170427, end: 20180910
  2. NORMACOL [Concomitant]
     Active Substance: HERBALS\KARAYA GUM
     Indication: PRODUCT USED FOR UNKNOWN INDICATION
     Dosage: 2 DF (SACHET), ONCE DAILY
     Route: 048
     Dates: start: 20160204
  3. VESICARE [Suspect]
     Active Substance: SOLIFENACIN SUCCINATE
     Indication: URINARY INCONTINENCE
     Dosage: 5 MG, ONCE DAILY (IN THE EVENING)
     Route: 048
     Dates: start: 20180816, end: 20180910
  4. TRAMADOL MYLAN [Suspect]
     Active Substance: TRAMADOL
     Indication: PRODUCT USED FOR UNKNOWN INDICATION
     Route: 048
     Dates: start: 20150522, end: 20180910
  5. LOSARTAN HCT SANDOZ [Concomitant]
     Indication: HYPERTENSION
     Dosage: 1 DF (50MG/12.5MG) ONCE DAILY
     Route: 048
     Dates: start: 20120201
  6. PRAVASTATINE SANDOZ [Concomitant]
     Active Substance: PRAVASTATIN SODIUM
     Indication: HYPERCHOLESTEROLAEMIA
     Dosage: 10 MG, ONCE DAILY (IN THE EVENING)
     Route: 048
     Dates: start: 2013

REACTIONS (1)
  - Dyskinesia [Recovered/Resolved]

NARRATIVE: CASE EVENT DATE: 20180906
